FAERS Safety Report 17259892 (Version 1)
Quarter: 2020Q1

REPORT INFORMATION
  Report Type: Spontaneous
  Country: GB (occurrence: GB)
  Receive Date: 20200111
  Receipt Date: 20200111
  Transmission Date: 20200409
  Serious: Yes (Life-Threatening, Hospitalization)
  Sender: FDA-Public Use
  Company Number: GB-TEVA-2020-GB-1165512

PATIENT
  Age: 47 Year
  Sex: Female
  Weight: 82 kg

DRUGS (10)
  1. OMEPRAZOLE. [Concomitant]
     Active Substance: OMEPRAZOLE
  2. PARACETAMOL [Concomitant]
     Active Substance: ACETAMINOPHEN
  3. MIRTAZAPINE. [Concomitant]
     Active Substance: MIRTAZAPINE
  4. ZOMORPH [Concomitant]
     Active Substance: MORPHINE SULFATE
  5. ORAMORPH [Concomitant]
     Active Substance: MORPHINE SULFATE
  6. MIRABEGRON [Concomitant]
     Active Substance: MIRABEGRON
  7. PREGABALIN. [Concomitant]
     Active Substance: PREGABALIN
  8. SOLIFENACIN [Concomitant]
     Active Substance: SOLIFENACIN
  9. AMITRIPTYLINE [Concomitant]
     Active Substance: AMITRIPTYLINE
  10. NITROFURANTOIN. [Suspect]
     Active Substance: NITROFURANTOIN
     Indication: URINARY TRACT INFECTION
     Dosage: 200 MG 1 DAYS
     Route: 048
     Dates: start: 20191125, end: 20191125

REACTIONS (1)
  - Anaphylactic reaction [Recovered/Resolved]

NARRATIVE: CASE EVENT DATE: 20191125
